FAERS Safety Report 19230818 (Version 3)
Quarter: 2021Q2

REPORT INFORMATION
  Report Type: Spontaneous
  Country: US (occurrence: US)
  Receive Date: 20210507
  Receipt Date: 20210528
  Transmission Date: 20210717
  Serious: No
  Sender: FDA-Public Use
  Company Number: US-BEH-2021131167

PATIENT
  Age: 58 Year
  Sex: Female

DRUGS (2)
  1. XIIDRA [Concomitant]
     Active Substance: LIFITEGRAST
  2. HIZENTRA [Suspect]
     Active Substance: HUMAN IMMUNOGLOBULIN G
     Indication: IMMUNODEFICIENCY COMMON VARIABLE
     Dosage: 12 GRAM (60 ML), QW
     Route: 058

REACTIONS (4)
  - Quality of life decreased [Unknown]
  - Therapy cessation [Unknown]
  - Circumstance or information capable of leading to medication error [Unknown]
  - Asthma [Unknown]

NARRATIVE: CASE EVENT DATE: 202103
